FAERS Safety Report 7435663-X (Version None)
Quarter: 2011Q2

REPORT INFORMATION
  Report Type: 
  Country: None (occurrence: None)
  Receive Date: 20110425
  Receipt Date: 20110223
  Transmission Date: 20111010
  Serious: Yes (Hospitalization, Other)
  Sender: FDA-Public Use
  Company Number: PHHY2011US14372

PATIENT
  Sex: Female
  Weight: 59.864 kg

DRUGS (12)
  1. LEVEMIR [Concomitant]
     Dosage: UNK
  2. TEKTURNA [Concomitant]
     Dosage: UNK
  3. COREG [Concomitant]
     Dosage: UNK
  4. ASPIRIN [Concomitant]
     Dosage: UNK
  5. JANUVIA [Concomitant]
     Dosage: UNK
  6. CALCIUM [Concomitant]
  7. ZOEOR [Concomitant]
     Dosage: UNK
  8. VITAMIN D [Concomitant]
     Dosage: UNK
  9. AVALIDE [Concomitant]
     Dosage: UNK
  10. LEVOTHYROXINE SODIUM [Concomitant]
     Dosage: UNK
  11. SIMVASTATIN [Concomitant]
     Indication: BLOOD CHOLESTEROL INCREASED
     Route: 048
  12. RECLAST [Suspect]
     Indication: OSTEOPENIA
     Dosage: 5 MG, YEARLY
     Route: 042
     Dates: start: 20110211, end: 20110211

REACTIONS (5)
  - RENAL FAILURE ACUTE [None]
  - LETHARGY [None]
  - PYREXIA [None]
  - NAUSEA [None]
  - LIVER FUNCTION TEST ABNORMAL [None]
